FAERS Safety Report 5396880-6 (Version None)
Quarter: 2007Q3

REPORT INFORMATION
  Report Type: 
  Country: None (occurrence: None)
  Receive Date: 20070725
  Receipt Date: 20070716
  Transmission Date: 20080115
  Serious: Yes (Hospitalization, Other)
  Sender: FDA-Public Use
  Company Number: US-ELI_LILLY_AND_COMPANY-US200705001479

PATIENT
  Age: 84 Year
  Sex: Female
  Weight: 56.689 kg

DRUGS (5)
  1. FORTEO [Suspect]
     Indication: OSTEOPOROSIS
     Dosage: 20 UG, UNK
     Dates: start: 20050201
  2. FORTEO [Suspect]
     Dosage: 20 UG, DAILY (1/D)
     Dates: start: 20060926, end: 20070101
  3. LEVOXYL [Concomitant]
  4. IBUPROFEN [Concomitant]
  5. ACTONEL [Concomitant]

REACTIONS (3)
  - FALL [None]
  - HIP FRACTURE [None]
  - N-TELOPEPTIDE URINE INCREASED [None]
